FAERS Safety Report 7877868-X (Version None)
Quarter: 2011Q4

REPORT INFORMATION
  Report Type: 
  Country: None (occurrence: None)
  Receive Date: 20111031
  Receipt Date: 20111031
  Transmission Date: 20120403
  Serious: No
  Sender: FDA-Public Use
  Company Number: None

PATIENT
  Age: 43 Year
  Sex: Female
  Weight: 108.86 kg

DRUGS (1)
  1. RECLAST [Suspect]
     Indication: OSTEOPOROSIS
     Dosage: ONE I.V.
     Route: 042

REACTIONS (5)
  - TRISMUS [None]
  - ECONOMIC PROBLEM [None]
  - DENTAL CARIES [None]
  - JAW DISORDER [None]
  - TOOTH LOSS [None]
